FAERS Safety Report 24432620 (Version 1)
Quarter: 2024Q4

REPORT INFORMATION
  Report Type: Spontaneous
  Country: US (occurrence: US)
  Receive Date: 20241014
  Receipt Date: 20241014
  Transmission Date: 20250114
  Serious: Yes (Hospitalization, Other)
  Sender: CHEPLAPHARM
  Company Number: US-CHEPLA-2024012938

PATIENT
  Age: 37 Year
  Sex: Male

DRUGS (2)
  1. HYDROXYUREA [Suspect]
     Active Substance: HYDROXYUREA
     Indication: Sickle cell anaemia
  2. FOLIC ACID [Suspect]
     Active Substance: FOLIC ACID
     Indication: Sickle cell anaemia

REACTIONS (3)
  - Sickle cell nephropathy [Unknown]
  - Renal tubular acidosis [Unknown]
  - Hypoaldosteronism [Unknown]
